FAERS Safety Report 5500645-1 (Version None)
Quarter: 2007Q4

REPORT INFORMATION
  Report Type: 
  Country: None (occurrence: None)
  Receive Date: 20071025
  Receipt Date: 20071009
  Transmission Date: 20080405
  Serious: Yes (Death, Other)
  Sender: FDA-Public Use
  Company Number: 2007US002567

PATIENT
  Age: 22 Year
  Sex: Female

DRUGS (3)
  1. PROGRAF [Suspect]
     Indication: RENAL TRANSPLANT
  2. MYCOPHENOLATE MOFETIL [Suspect]
     Indication: RENAL TRANSPLANT
  3. PREDNISONE TAB [Suspect]
     Indication: RENAL TRANSPLANT

REACTIONS (10)
  - ACUTE RESPIRATORY FAILURE [None]
  - ARTERITIS INFECTIVE [None]
  - CANDIDIASIS [None]
  - COMPLICATIONS OF TRANSPLANTED KIDNEY [None]
  - ENTEROCOCCAL BACTERAEMIA [None]
  - FUNGAL INFECTION [None]
  - GLOMERULONEPHRITIS RAPIDLY PROGRESSIVE [None]
  - NO THERAPEUTIC RESPONSE [None]
  - RENAL ANEURYSM [None]
  - RENAL TUBULAR NECROSIS [None]
